FAERS Safety Report 4711768-9 (Version None)
Quarter: 2005Q2

REPORT INFORMATION
  Report Type: 
  Country: None (occurrence: None)
  Receive Date: 20050629
  Receipt Date: 20050523
  Transmission Date: 20051028
  Serious: No
  Sender: FDA-Public Use
  Company Number: 05P-163-0301084-00

PATIENT
  Age: 87 Year
  Sex: 0
  Weight: 49.8957 kg

DRUGS (11)
  1. HUMIRA [Suspect]
     Indication: RHEUMATOID ARTHRITIS
     Dosage: 40 MG, 1 IN 2 WK, SUBCUTANEOUS
     Route: 058
     Dates: start: 20050317, end: 20050401
  2. HUMIRA [Suspect]
     Indication: RHEUMATOID ARTHRITIS
     Dosage: 40 MG, 1 IN 2 WK, SUBCUTANEOUS
     Route: 058
     Dates: start: 20050428
  3. PREDNISONE [Concomitant]
  4. HYDROXYCHLOROQUINE PHOSPHATE [Concomitant]
  5. ATENOLOL [Concomitant]
  6. PANTOPRAZOLE [Concomitant]
  7. ATORVASTATIN CALCIUM [Concomitant]
  8. TRIAMTERENE [Concomitant]
  9. LEXAPRO [Concomitant]
  10. FOLTX [Concomitant]
  11. CENTRUM [Concomitant]

REACTIONS (3)
  - CONTUSION [None]
  - LIP DISCOLOURATION [None]
  - RASH [None]
